FAERS Safety Report 24263687 (Version 2)
Quarter: 2024Q3

REPORT INFORMATION
  Report Type: Spontaneous
  Country: GB (occurrence: GB)
  Receive Date: 20240829
  Receipt Date: 20240905
  Transmission Date: 20241016
  Serious: Yes (Life-Threatening, Hospitalization)
  Sender: HIKMA
  Company Number: GB-MLMSERVICE-20240812-PI160784-00101-1

PATIENT
  Age: 26 Year
  Sex: Female

DRUGS (7)
  1. BLEOMYCIN [Suspect]
     Active Substance: BLEOMYCIN SULFATE
     Indication: Ovarian germ cell teratoma stage II
     Dosage: CYCLICAL
     Route: 065
  2. BLEOMYCIN [Suspect]
     Active Substance: BLEOMYCIN SULFATE
     Indication: Disease progression
  3. ETOPOSIDE [Suspect]
     Active Substance: ETOPOSIDE
     Dosage: NOT APPLICABLE (NOT HIKMA^S SUSPECT)
  4. ETOPOSIDE [Suspect]
     Active Substance: ETOPOSIDE
     Indication: Ovarian germ cell teratoma stage II
     Dosage: CYCLICAL
     Route: 042
  5. ETOPOSIDE [Suspect]
     Active Substance: ETOPOSIDE
     Indication: Disease progression
  6. CISPLATIN [Suspect]
     Active Substance: CISPLATIN
     Indication: Ovarian germ cell teratoma stage II
     Dosage: CYCLICAL
     Route: 042
  7. CISPLATIN [Suspect]
     Active Substance: CISPLATIN
     Indication: Disease progression

REACTIONS (4)
  - Hyponatraemia [Recovered/Resolved]
  - Vomiting [Unknown]
  - Diarrhoea [Unknown]
  - Ascites [Unknown]
